FAERS Safety Report 10914903 (Version 2)
Quarter: 2015Q1

REPORT INFORMATION
  Report Type: Spontaneous
  Country: US (occurrence: US)
  Receive Date: 20150314
  Receipt Date: 20150319
  Transmission Date: 20150721
  Serious: No
  Sender: FDA-Public Use
  Company Number: US-BIOGENIDEC-2015BI028262

PATIENT
  Sex: Female

DRUGS (1)
  1. TECFIDERA [Suspect]
     Active Substance: DIMETHYL FUMARATE
     Indication: PRODUCT USED FOR UNKNOWN INDICATION

REACTIONS (13)
  - Tongue discolouration [Recovered/Resolved]
  - Drug intolerance [Unknown]
  - Cognitive disorder [Unknown]
  - Skin burning sensation [Recovered/Resolved]
  - Gastrointestinal pain [Unknown]
  - Nausea [Recovered/Resolved]
  - Stress [Unknown]
  - Hypoaesthesia [Unknown]
  - Paraesthesia [Unknown]
  - Malaise [Recovered/Resolved]
  - Balance disorder [Unknown]
  - Gastrointestinal disorder [Unknown]
  - Alopecia [Recovered/Resolved]
